FAERS Safety Report 4985163-1 (Version None)
Quarter: 2006Q2

REPORT INFORMATION
  Report Type: 
  Country: None (occurrence: None)
  Receive Date: 20060427
  Receipt Date: 20050913
  Transmission Date: 20061013
  Serious: Yes (Hospitalization)
  Sender: FDA-Public Use
  Company Number: US-MERCK-0509USA01933

PATIENT
  Age: 72 Year
  Sex: Female
  Weight: 68 kg

DRUGS (4)
  1. VIOXX [Suspect]
     Indication: ARTHRITIS
     Route: 048
     Dates: start: 20000103, end: 20031212
  2. VIOXX [Suspect]
     Indication: OSTEITIS DEFORMANS
     Route: 048
     Dates: start: 20000103, end: 20031212
  3. VIOXX [Concomitant]
     Route: 048
  4. VIOXX [Concomitant]
     Route: 048

REACTIONS (1)
  - ARRHYTHMIA [None]
